FAERS Safety Report 5007231-0 (Version None)
Quarter: 2006Q1

REPORT INFORMATION
  Report Type: 
  Country: None (occurrence: None)
  Receive Date: 20060320
  Receipt Date: 20050404
  Transmission Date: 20060701
  Serious: Yes (Other)
  Sender: FDA-Public Use
  Company Number: 2005-04-0122

PATIENT
  Age: 52 Year
  Sex: Male
  Weight: 92.9874 kg

DRUGS (5)
  1. PEG-INTRON [Suspect]
     Indication: HEPATITIS C
     Dosage: 105 MCG
     Dates: start: 20050204
  2. REBETOL [Suspect]
     Indication: HEPATITIS C
     Dosage: 1200 MG QD ORAL
     Route: 048
     Dates: start: 20050204
  3. CLARITIN [Concomitant]
  4. CELEBREX [Concomitant]
  5. DEMEROL [Concomitant]

REACTIONS (1)
  - BLOOD GLUCOSE INCREASED [None]
